FAERS Safety Report 10929543 (Version 1)
Quarter: 2015Q1

REPORT INFORMATION
  Report Type: Spontaneous
  Country: US (occurrence: None)
  Receive Date: 20150318
  Receipt Date: 20150318
  Transmission Date: 20150721
  Serious: No
  Sender: FDA-Public Use
  Company Number: None

PATIENT
  Age: 19 Year
  Sex: Female
  Weight: 70.31 kg

DRUGS (2)
  1. DEPO-PROVERA [Suspect]
     Active Substance: MEDROXYPROGESTERONE ACETATE
     Indication: CONTRACEPTION
     Dosage: ONCE EVERY 3 MONTHS
     Route: 030
     Dates: start: 20141223, end: 20150317
  2. NUVARING [Concomitant]
     Active Substance: ETHINYL ESTRADIOL\ETONOGESTREL
     Indication: CONTRACEPTION

REACTIONS (5)
  - Depression [None]
  - Acne [None]
  - Weight increased [None]
  - Oligomenorrhoea [None]
  - Mood swings [None]

NARRATIVE: CASE EVENT DATE: 20141223
